FAERS Safety Report 25520644 (Version 1)
Quarter: 2025Q3

REPORT INFORMATION
  Report Type: Spontaneous
  Country: US (occurrence: US)
  Receive Date: 20250705
  Receipt Date: 20250705
  Transmission Date: 20251020
  Serious: No
  Sender: AUROBINDO
  Company Number: US-AUROBINDO-AUR-APL-2025-021379

PATIENT
  Age: 56 Year
  Sex: Male
  Weight: 85.275 kg

DRUGS (1)
  1. VALACYCLOVIR HYDROCHLORIDE [Suspect]
     Active Substance: VALACYCLOVIR HYDROCHLORIDE
     Indication: Epstein-Barr virus infection
     Dosage: 1 GRAM, TWO TIMES A DAY
     Route: 048
     Dates: start: 20250323

REACTIONS (1)
  - Lip dry [Not Recovered/Not Resolved]
